FAERS Safety Report 4357865-1 (Version None)
Quarter: 2004Q2

REPORT INFORMATION
  Report Type: 
  Country: None (occurrence: None)
  Receive Date: 20040513
  Receipt Date: 20040513
  Transmission Date: 20050107
  Serious: No
  Sender: FDA-Public Use
  Company Number: None

PATIENT
  Age: 51 Year
  Sex: Male
  Weight: 63 kg

DRUGS (1)
  1. MORPHINE [Suspect]
     Dosage: 60 MG QID ORAL
     Route: 048
     Dates: start: 20040105, end: 20040111

REACTIONS (4)
  - CONFUSIONAL STATE [None]
  - HYPOXIA [None]
  - MENTAL STATUS CHANGES [None]
  - PHARMACEUTICAL PRODUCT COMPLAINT [None]
